FAERS Safety Report 9728392 (Version 1)
Quarter: 2013Q4

REPORT INFORMATION
  Report Type: Spontaneous
  Country: JP (occurrence: JP)
  Receive Date: 20131204
  Receipt Date: 20131204
  Transmission Date: 20140711
  Serious: Yes (Other)
  Sender: FDA-Public Use
  Company Number: JP-ASTELLAS-2013JP013178

PATIENT
  Age: 56 Year
  Sex: Male

DRUGS (4)
  1. PROGRAF [Suspect]
     Indication: PROPHYLAXIS AGAINST GRAFT VERSUS HOST DISEASE
     Dosage: 0.5 MG, UNKNOWN/D
     Route: 065
     Dates: start: 201302, end: 2013
  2. PROGRAF [Suspect]
     Dosage: UNK
     Route: 065
     Dates: end: 201302
  3. PROGRAF [Suspect]
     Dosage: UNK
     Route: 065
     Dates: start: 2013, end: 2013
  4. PROGRAF [Suspect]
     Dosage: UNK
     Route: 065
     Dates: start: 2013

REACTIONS (2)
  - Drug ineffective [Unknown]
  - Chronic graft versus host disease [Unknown]
